FAERS Safety Report 7817043-8 (Version None)
Quarter: 2011Q4

REPORT INFORMATION
  Report Type: 
  Country: None (occurrence: None)
  Receive Date: 20111014
  Receipt Date: 20111014
  Transmission Date: 20120403
  Serious: Yes (Hospitalization, Other)
  Sender: FDA-Public Use
  Company Number: None

PATIENT
  Age: 70 Year
  Sex: Female
  Weight: 109.3169 kg

DRUGS (1)
  1. LISINOPRIL [Suspect]
     Indication: HYPERTENSION
     Dosage: 40 MG DAILY
     Dates: start: 20110813, end: 20110815

REACTIONS (4)
  - DYSPNOEA [None]
  - SWELLING FACE [None]
  - LIP SWELLING [None]
  - URTICARIA [None]
